FAERS Safety Report 5516471-3 (Version None)
Quarter: 2007Q4

REPORT INFORMATION
  Report Type: 
  Country: None (occurrence: None)
  Receive Date: 20071114
  Receipt Date: 20070301
  Transmission Date: 20080405
  Serious: No
  Sender: FDA-Public Use
  Company Number: A0641320A

PATIENT
  Age: 54 Year
  Sex: Male

DRUGS (3)
  1. COMMIT [Suspect]
     Dates: end: 20070227
  2. ANTIDEPRESSANT (UNSPECIFIED) [Concomitant]
  3. PSYCHOTROPIC MEDICATIONS [Concomitant]

REACTIONS (1)
  - FATIGUE [None]
